FAERS Safety Report 9068900 (Version 1)
Quarter: 2013Q1

REPORT INFORMATION
  Report Type: Report from Study
  Country: US (occurrence: US)
  Receive Date: 20130128
  Receipt Date: 20130128
  Transmission Date: 20140127
  Serious: Yes (Other)
  Sender: FDA-Public Use
  Company Number: PHEH2012US014397

PATIENT
  Age: 31 Year
  Sex: Female
  Weight: 78.6 kg

DRUGS (10)
  1. GILENYA [Suspect]
     Indication: MULTIPLE SCLEROSIS
     Dosage: 0.5 MG, QD
     Route: 048
     Dates: start: 20120228, end: 20120719
  2. GILENYA [Suspect]
     Dosage: 0.5 MG, QD
     Route: 048
     Dates: start: 20121029
  3. PROPRANOLOL [Concomitant]
     Indication: MIGRAINE WITHOUT AURA
     Dosage: 80 MG, BID
     Route: 048
     Dates: start: 201112
  4. VIT D [Concomitant]
     Indication: VITAMIN D DEFICIENCY
     Dosage: 50000 UKN, QW
     Route: 048
  5. AMANTADINE HCL [Concomitant]
     Indication: FATIGUE
     Dosage: 100 MG, BID
     Route: 048
     Dates: start: 20111111, end: 20120327
  6. AMANTADINE HCL [Concomitant]
     Dosage: 200 MG, BID
     Route: 048
     Dates: start: 20120328
  7. CYMBALTA [Concomitant]
     Dosage: 60 MG, QD
     Route: 048
     Dates: start: 20110928
  8. NUVIGIL [Concomitant]
     Indication: FATIGUE
     Dosage: 150 MG, QD
     Dates: start: 20100416
  9. VITAMIN B12 [Concomitant]
     Indication: FATIGUE
     Dosage: 1000 UG, QD
     Route: 048
  10. FOLIC ACID [Concomitant]
     Dosage: 400 MG, QD
     Route: 048

REACTIONS (7)
  - Abortion spontaneous [Unknown]
  - Memory impairment [Unknown]
  - Chest discomfort [Unknown]
  - Visual impairment [Unknown]
  - Vision blurred [Unknown]
  - Exposure during pregnancy [Unknown]
  - White blood cell count decreased [Unknown]
